FAERS Safety Report 9834853 (Version 3)
Quarter: 2014Q2

REPORT INFORMATION
  Report Type: Spontaneous
  Country: CA (occurrence: CA)
  Receive Date: 20140122
  Receipt Date: 20140603
  Transmission Date: 20141212
  Serious: Yes (Death, Other)
  Sender: FDA-Public Use
  Company Number: CA-AMGEN-CANSP2014003924

PATIENT
  Age: 83 Year
  Sex: Female

DRUGS (1)
  1. PROLIA [Suspect]
     Indication: OSTEOPOROSIS POSTMENOPAUSAL
     Dosage: 60 MG, Q6MO
     Route: 065
     Dates: start: 201211

REACTIONS (8)
  - Death [Fatal]
  - Plasma cell myeloma [Unknown]
  - Cardiac failure congestive [Unknown]
  - Pathological fracture [Unknown]
  - Multimorbidity [Unknown]
  - Malaise [Unknown]
  - Non-Hodgkin^s lymphoma [Unknown]
  - Leukaemia [Unknown]
